FAERS Safety Report 8811990 (Version 1)
Quarter: 2012Q4

REPORT INFORMATION
  Report Type: 
  Country: IE (occurrence: IE)
  Receive Date: 20120927
  Receipt Date: 20120927
  Transmission Date: 20130627
  Serious: Yes (Hospitalization)
  Sender: FDA-Public Use
  Company Number: IE-UCBSA-067308

PATIENT
  Age: 15 Year
  Sex: Female
  Weight: 44.5 kg

DRUGS (2)
  1. KEPPRA [Suspect]
     Indication: EPILEPSY
     Dosage: DOSE 1350 MG
     Route: 042
     Dates: start: 201208, end: 2012
  2. TRILEPTAL [Concomitant]

REACTIONS (6)
  - Somnolence [Recovered/Resolved]
  - Amnesia [Recovered/Resolved]
  - Depression [Recovered/Resolved]
  - Coordination abnormal [Not Recovered/Not Resolved]
  - Asthenia [Recovered/Resolved]
  - Nausea [Recovered/Resolved]
